FAERS Safety Report 9399691 (Version 1)
Quarter: 2013Q3

REPORT INFORMATION
  Report Type: Report from Study
  Country: PL (occurrence: PL)
  Receive Date: 20130715
  Receipt Date: 20130715
  Transmission Date: 20140515
  Serious: No
  Sender: FDA-Public Use
  Company Number: PHHY2013PL074361

PATIENT
  Sex: Male

DRUGS (5)
  1. AMN107 [Suspect]
     Dosage: UNK
  2. AMN107 [Suspect]
     Dosage: 400 MG, UNK
     Dates: start: 20121105
  3. OMEPRAZOLE [Concomitant]
  4. AMLODIPINE [Concomitant]
  5. TAMSULOSIN [Concomitant]

REACTIONS (1)
  - Blood bilirubin increased [Not Recovered/Not Resolved]
